FAERS Safety Report 16512753 (Version 3)
Quarter: 2020Q1

REPORT INFORMATION
  Report Type: Spontaneous
  Country: IT (occurrence: IT)
  Receive Date: 20190702
  Receipt Date: 20200113
  Transmission Date: 20200409
  Serious: Yes (Other)
  Sender: FDA-Public Use
  Company Number: IT-MYLANLABS-2019M1060188

PATIENT
  Age: 77 Year
  Sex: Male

DRUGS (17)
  1. PREDNISONE. [Suspect]
     Active Substance: PREDNISONE
     Indication: DIFFUSE LARGE B-CELL LYMPHOMA
  2. VINCRISTINE [Suspect]
     Active Substance: VINCRISTINE
     Indication: HEPATIC CIRRHOSIS
     Dosage: R-CHOP REGIMEN
     Route: 065
  3. RITUXIMAB. [Suspect]
     Active Substance: RITUXIMAB
     Indication: DIFFUSE LARGE B-CELL LYMPHOMA
     Dosage: R-CHOP REGIMEN
     Route: 065
  4. RITUXIMAB. [Suspect]
     Active Substance: RITUXIMAB
     Indication: HEPATIC CIRRHOSIS
  5. RITUXIMAB. [Suspect]
     Active Substance: RITUXIMAB
     Indication: DIFFUSE LARGE B-CELL LYMPHOMA STAGE IV
  6. VINCRISTINE [Suspect]
     Active Substance: VINCRISTINE
     Indication: DIFFUSE LARGE B-CELL LYMPHOMA STAGE IV
  7. CYCLOPHOSPHAMIDE. [Suspect]
     Active Substance: CYCLOPHOSPHAMIDE
     Indication: HEPATIC CIRRHOSIS
     Dosage: R-CHOP REGIMEN
     Route: 065
  8. CYCLOPHOSPHAMIDE. [Suspect]
     Active Substance: CYCLOPHOSPHAMIDE
     Indication: DIFFUSE LARGE B-CELL LYMPHOMA STAGE IV
  9. INTERFERON ALFA-2B W/RIBAVIRIN [Concomitant]
     Dosage: UNK
  10. DOXORUBICIN [Suspect]
     Active Substance: DOXORUBICIN
     Indication: HEPATIC CIRRHOSIS
  11. LEDIPASVIR W/SOFOSBUVIR [Concomitant]
     Active Substance: LEDIPASVIR\SOFOSBUVIR
     Indication: CHRONIC HEPATITIS C
     Dosage: UNK
     Route: 065
  12. LENALIDOMIDE W/RITUXIMAB [Concomitant]
     Dosage: UNK
  13. PREDNISONE. [Suspect]
     Active Substance: PREDNISONE
     Indication: HEPATIC CIRRHOSIS
     Dosage: R-CHOP REGIMEN
     Route: 065
  14. DOXORUBICIN [Suspect]
     Active Substance: DOXORUBICIN
     Indication: DIFFUSE LARGE B-CELL LYMPHOMA
     Dosage: R-CHOP REGIMEN
     Route: 065
  15. CYCLOPHOSPHAMIDE. [Suspect]
     Active Substance: CYCLOPHOSPHAMIDE
     Indication: DIFFUSE LARGE B-CELL LYMPHOMA
  16. DOXORUBICIN [Suspect]
     Active Substance: DOXORUBICIN
     Indication: DIFFUSE LARGE B-CELL LYMPHOMA STAGE IV
  17. VINCRISTINE [Suspect]
     Active Substance: VINCRISTINE
     Indication: DIFFUSE LARGE B-CELL LYMPHOMA

REACTIONS (2)
  - Hepatocellular carcinoma [Recovered/Resolved]
  - Hepatitis C [Recovered/Resolved]
